FAERS Safety Report 6417243-8 (Version None)
Quarter: 2009Q4

REPORT INFORMATION
  Report Type: 
  Country: None (occurrence: None)
  Receive Date: 20091027
  Receipt Date: 20091027
  Transmission Date: 20100525
  Serious: Yes (Death)
  Sender: FDA-Public Use
  Company Number: None

PATIENT
  Age: 75 Year
  Sex: Male
  Weight: 84 kg

DRUGS (9)
  1. CETUXIMAB [Suspect]
     Indication: HEAD AND NECK CANCER
     Dosage: 750 MG IV WEEKLY
     Route: 042
     Dates: start: 20090917
  2. DEXAMETHASONE [Concomitant]
  3. DIPHENHYDRAMINE [Concomitant]
  4. PALONOSETRON [Concomitant]
  5. LISINOPRIL [Concomitant]
  6. OXYCODONE HCL AND ACETAMINOPHEN [Concomitant]
  7. ATENOLOL [Concomitant]
  8. PRAVASTATATIN [Concomitant]
  9. ASPIRIN [Concomitant]

REACTIONS (3)
  - CIRCULATORY COLLAPSE [None]
  - RESPIRATORY ARREST [None]
  - SYNCOPE [None]
